FAERS Safety Report 24297681 (Version 2)
Quarter: 2024Q3

REPORT INFORMATION
  Report Type: Spontaneous
  Country: GB (occurrence: GB)
  Receive Date: 20240909
  Receipt Date: 20240918
  Transmission Date: 20241017
  Serious: Yes (Other)
  Sender: LEO PHARM
  Company Number: None

PATIENT
  Age: 50 Year
  Sex: Female

DRUGS (4)
  1. TACROLIMUS [Suspect]
     Active Substance: TACROLIMUS
     Indication: Lichen planopilaris
     Dosage: 1 DOSAGE FORM
     Route: 003
  2. ISOTRETINOIN [Suspect]
     Active Substance: ISOTRETINOIN
     Indication: Lichen planopilaris
     Dosage: 20 MILLIGRAM, QD
  3. MOMETASONE [Suspect]
     Active Substance: MOMETASONE
     Indication: Lichen planopilaris
     Dosage: 0.1 PERCENT TWO TIMES WEEKLY
  4. HYDROXYCHLOROQUINE [Suspect]
     Active Substance: HYDROXYCHLOROQUINE
     Indication: Lichen planopilaris
     Dosage: 200 MILLIGRAM, DAILY

REACTIONS (2)
  - Disease progression [Unknown]
  - Drug ineffective [Unknown]
